FAERS Safety Report 17960510 (Version 1)
Quarter: 2020Q2

REPORT INFORMATION
  Report Type: Spontaneous
  Country: FR (occurrence: FR)
  Receive Date: 20200630
  Receipt Date: 20200630
  Transmission Date: 20200714
  Serious: Yes (Hospitalization)
  Sender: FDA-Public Use
  Company Number: FR-TEVA-2020-FR-1792785

PATIENT
  Age: 92 Year
  Sex: Female

DRUGS (16)
  1. ABASAGLAR [Concomitant]
     Active Substance: INSULIN GLARGINE
  2. TANGANIL [Concomitant]
     Active Substance: ACETYLLEUCINE
  3. JANUVIA [Concomitant]
     Active Substance: SITAGLIPTIN PHOSPHATE
  4. RAMIPRIL. [Concomitant]
     Active Substance: RAMIPRIL
  5. DIFFU K [Concomitant]
     Active Substance: POTASSIUM CHLORIDE
  6. MACROGOL 4000 [Concomitant]
     Active Substance: POLYETHYLENE GLYCOL 4000
  7. CEFTRIAXONE SODIQUE [Interacting]
     Active Substance: CEFTRIAXONE SODIUM
     Indication: COVID-19 TREATMENT
     Dosage: 1G
     Route: 058
     Dates: start: 20200430, end: 20200507
  8. DOLIPRANE [Concomitant]
     Active Substance: ACETAMINOPHEN
  9. LOVENOX [Interacting]
     Active Substance: ENOXAPARIN SODIUM
     Indication: THROMBOSIS PROPHYLAXIS
     Dosage: 4000 IU
     Route: 058
     Dates: start: 20200430, end: 20200503
  10. PHLOROGLUCINOL (TRIMETHYL ETHER DU) [Concomitant]
     Active Substance: 1,3,5-TRIMETHOXYBENZENE
  11. FUROSEMIDE. [Concomitant]
     Active Substance: FUROSEMIDE
  12. THERALENE [Concomitant]
     Active Substance: TRIMEPRAZINE
  13. AZITHROMYCINE [Suspect]
     Active Substance: AZITHROMYCIN
     Indication: COVID-19 TREATMENT
     Dosage: 250MG
     Route: 048
     Dates: start: 20200501, end: 20200505
  14. PREVISCAN 20 MG, COMPRIME SECABLE [Interacting]
     Active Substance: FLUINDIONE
     Indication: ATRIAL FIBRILLATION
     Dosage: 20MG
     Route: 048
     Dates: start: 201908, end: 20200504
  15. SERESTA 10 MG, COMPRIME [Concomitant]
     Active Substance: OXAZEPAM
  16. VERAPAMIL (CHLORHYDRATE DE) [Concomitant]
     Active Substance: VERAPAMIL HYDROCHLORIDE

REACTIONS (2)
  - Haematoma [Recovering/Resolving]
  - Drug interaction [Unknown]

NARRATIVE: CASE EVENT DATE: 20200504
